FAERS Safety Report 16695335 (Version 2)
Quarter: 2019Q3

REPORT INFORMATION
  Report Type: Spontaneous
  Country: JP (occurrence: JP)
  Receive Date: 20190813
  Receipt Date: 20190923
  Transmission Date: 20191004
  Serious: Yes (Other)
  Sender: FDA-Public Use
  Company Number: JP-009507513-1908JPN000421J

PATIENT
  Age: 70 Year
  Sex: Female

DRUGS (4)
  1. CARBOPLATIN. [Concomitant]
     Active Substance: CARBOPLATIN
     Dosage: AUC6
     Route: 065
     Dates: start: 20190218, end: 2019
  2. ABRAXANE [Concomitant]
     Active Substance: PACLITAXEL
     Dosage: 100 MILLIGRAM/SQ. METER, QW
     Route: 065
     Dates: start: 20190218, end: 2019
  3. KEYTRUDA [Suspect]
     Active Substance: PEMBROLIZUMAB
     Indication: NON-SMALL CELL LUNG CANCER
     Dosage: 200 MILLIGRAM, Q3W
     Route: 041
     Dates: start: 20190218, end: 20190218
  4. KEYTRUDA [Suspect]
     Active Substance: PEMBROLIZUMAB
     Dosage: 200 MILLIGRAM, Q3W
     Route: 041
     Dates: start: 2019, end: 2019

REACTIONS (3)
  - Malignant neoplasm progression [Unknown]
  - Tumour associated fever [Recovered/Resolved]
  - Tumour invasion [Recovered/Resolved]

NARRATIVE: CASE EVENT DATE: 2019
